FAERS Safety Report 9356014 (Version 1)
Quarter: 2013Q2

REPORT INFORMATION
  Report Type: Spontaneous
  Country: GB (occurrence: GB)
  Receive Date: 20130619
  Receipt Date: 20130619
  Transmission Date: 20140414
  Serious: Yes (Hospitalization)
  Sender: FDA-Public Use
  Company Number: GB-JNJFOC-20130604302

PATIENT
  Age: 3 Year
  Sex: Male
  Weight: 15.7 kg

DRUGS (15)
  1. DOXORUBICIN HYDROCHLORIDE [Suspect]
     Indication: NEOPLASM MALIGNANT
     Route: 040
     Dates: start: 20130504
  2. DOXORUBICIN HYDROCHLORIDE [Suspect]
     Indication: NEOPLASM MALIGNANT
     Route: 040
     Dates: start: 20130505
  3. ACTINOMYCIN D [Suspect]
     Indication: NEOPLASM MALIGNANT
     Route: 040
     Dates: start: 20130504
  4. IFOSFAMIDE [Suspect]
     Indication: NEOPLASM MALIGNANT
     Route: 041
     Dates: start: 20130504
  5. IFOSFAMIDE [Suspect]
     Indication: NEOPLASM MALIGNANT
     Route: 041
     Dates: start: 20130505
  6. VINCRISTINE SULPHATE [Suspect]
     Indication: NEOPLASM MALIGNANT
     Route: 040
     Dates: start: 20130508
  7. VINCRISTINE SULPHATE [Suspect]
     Indication: NEOPLASM MALIGNANT
     Route: 040
     Dates: start: 20130504
  8. DEXAMETHASONE [Concomitant]
     Indication: PRODUCT USED FOR UNKNOWN INDICATION
     Route: 065
     Dates: start: 20130504, end: 20130505
  9. LEVOMEPROMAZINE [Concomitant]
     Indication: PRODUCT USED FOR UNKNOWN INDICATION
     Route: 065
     Dates: start: 20130504
  10. METOCLOPRAMIDE [Concomitant]
     Indication: PRODUCT USED FOR UNKNOWN INDICATION
     Route: 065
     Dates: start: 20130504
  11. MOVICOL [Concomitant]
     Indication: PRODUCT USED FOR UNKNOWN INDICATION
     Route: 065
  12. ONDANSETRON [Concomitant]
     Indication: PRODUCT USED FOR UNKNOWN INDICATION
     Route: 065
     Dates: start: 20130504
  13. PANTOPRAZOLE [Concomitant]
     Indication: PRODUCT USED FOR UNKNOWN INDICATION
     Route: 065
     Dates: start: 20130505
  14. TAZOCIN [Concomitant]
     Indication: PRODUCT USED FOR UNKNOWN INDICATION
     Route: 065
     Dates: start: 20130513
  15. PARACETAMOL [Concomitant]
     Dates: start: 20130430

REACTIONS (3)
  - Febrile neutropenia [Unknown]
  - Hypophagia [Unknown]
  - Pleural effusion [Unknown]
